FAERS Safety Report 25707774 (Version 2)
Quarter: 2025Q3

REPORT INFORMATION
  Report Type: Spontaneous
  Country: US (occurrence: US)
  Receive Date: 20250820
  Receipt Date: 20250910
  Transmission Date: 20251020
  Serious: Yes (Hospitalization)
  Sender: CALLIDITAS THERAPEUTICS AB
  Company Number: US-Calliditas-2025CAL02511

PATIENT
  Age: 22 Year
  Sex: Female

DRUGS (20)
  1. TARPEYO [Suspect]
     Active Substance: BUDESONIDE
     Indication: IgA nephropathy
     Route: 048
     Dates: start: 20250610
  2. ALBUTEROL [Concomitant]
     Active Substance: ALBUTEROL
  3. APREPITANT [Concomitant]
     Active Substance: APREPITANT
  4. CYPROHEPTADINE [Concomitant]
     Active Substance: CYPROHEPTADINE
  5. FLUOXETINE [Concomitant]
     Active Substance: FLUOXETINE HYDROCHLORIDE
  6. FLONASE [Concomitant]
     Active Substance: FLUTICASONE PROPIONATE
  7. GABAPENTIN [Concomitant]
     Active Substance: GABAPENTIN
  8. INFLIXIMAB [Concomitant]
     Active Substance: INFLIXIMAB
  9. LEVOCARNITINE [Concomitant]
     Active Substance: LEVOCARNITINE
  10. LATUDA [Concomitant]
     Active Substance: LURASIDONE HYDROCHLORIDE
  11. XYZAL [Concomitant]
     Active Substance: LEVOCETIRIZINE DIHYDROCHLORIDE
  12. LISINOPRIL [Concomitant]
     Active Substance: LISINOPRIL
  13. MELATONIN [Concomitant]
     Active Substance: MELATONIN
  14. MYCOPHENOLIC ACID [Concomitant]
     Active Substance: MYCOPHENOLIC ACID
  15. OMEPRAZOLE [Concomitant]
     Active Substance: OMEPRAZOLE
  16. ZOFRAN [Concomitant]
     Active Substance: ONDANSETRON HYDROCHLORIDE
  17. VITAMIN B2 [Concomitant]
     Active Substance: RIBOFLAVIN
  18. VITAMIN D3 [Concomitant]
     Active Substance: CHOLECALCIFEROL
  19. WELLBUTRIN [Concomitant]
     Active Substance: BUPROPION HYDROCHLORIDE
  20. AMBIEN [Concomitant]
     Active Substance: ZOLPIDEM TARTRATE

REACTIONS (3)
  - Infection [Unknown]
  - Increased appetite [Unknown]
  - Insomnia [Unknown]
